FAERS Safety Report 5815559-7 (Version None)
Quarter: 2008Q3

REPORT INFORMATION
  Report Type: 
  Country: None (occurrence: None)
  Receive Date: 20080718
  Receipt Date: 20080708
  Transmission Date: 20090109
  Serious: Yes (Other)
  Sender: FDA-Public Use
  Company Number: US-PFIZER INC-2008058097

PATIENT
  Sex: Female
  Weight: 90.7 kg

DRUGS (8)
  1. NEURONTIN [Suspect]
     Indication: NERVE INJURY
     Route: 048
  2. IBUPROFEN [Concomitant]
  3. ACETYLSALICYLIC ACID SRT [Concomitant]
  4. NAPROXEN [Concomitant]
  5. LAMICTAL [Concomitant]
  6. MIRTAZAPINE [Concomitant]
  7. KLONOPIN [Concomitant]
  8. ALL OTHER THERAPEUTIC PRODUCTS [Concomitant]

REACTIONS (4)
  - DRUG INEFFECTIVE [None]
  - EYE DISORDER [None]
  - INCORRECT DOSE ADMINISTERED [None]
  - VISUAL ACUITY REDUCED [None]
